FAERS Safety Report 18253877 (Version 4)
Quarter: 2020Q3

REPORT INFORMATION
  Report Type: Spontaneous
  Country: BR (occurrence: BR)
  Receive Date: 20200910
  Receipt Date: 20200928
  Transmission Date: 20201103
  Serious: Yes (Hospitalization, Other)
  Sender: FDA-Public Use
  Company Number: BR-PFIZER INC-2020335322

PATIENT
  Age: 73 Year
  Sex: Female
  Weight: 63 kg

DRUGS (2)
  1. SUTENT [Suspect]
     Active Substance: SUNITINIB MALATE
     Indication: CLEAR CELL RENAL CELL CARCINOMA
     Dosage: 50 MG
     Dates: start: 20200816, end: 2020
  2. SUTENT [Suspect]
     Active Substance: SUNITINIB MALATE
     Dosage: 50 MG
     Dates: start: 2020

REACTIONS (19)
  - Oedematous kidney [Recovered/Resolved]
  - Procedural pain [Recovered/Resolved]
  - Vomiting [Recovered/Resolved]
  - Haemorrhage urinary tract [Recovered/Resolved]
  - Renal haemorrhage [Recovered/Resolved]
  - Renal failure [Recovered/Resolved]
  - Swelling face [Not Recovered/Not Resolved]
  - Ureteric obstruction [Recovered/Resolved]
  - Swelling of eyelid [Not Recovered/Not Resolved]
  - Urinary retention [Recovered/Resolved]
  - Device related infection [Recovering/Resolving]
  - Urinary incontinence [Recovering/Resolving]
  - Haematuria [Not Recovered/Not Resolved]
  - Nausea [Recovered/Resolved]
  - Feeding disorder [Recovered/Resolved]
  - Urinary tract infection [Recovered/Resolved]
  - Diarrhoea haemorrhagic [Recovered/Resolved]
  - Neoplasm progression [Not Recovered/Not Resolved]
  - Constipation [Unknown]

NARRATIVE: CASE EVENT DATE: 20200816
